FAERS Safety Report 11156052 (Version 1)
Quarter: 2015Q2

REPORT INFORMATION
  Report Type: Spontaneous
  Country: US (occurrence: None)
  Receive Date: 20150601
  Receipt Date: 20150601
  Transmission Date: 20150821
  Serious: No
  Sender: FDA-Public Use
  Company Number: None

PATIENT
  Age: 61 Year
  Sex: Female

DRUGS (12)
  1. FOSAMAX [Concomitant]
     Active Substance: ALENDRONATE SODIUM
  2. ARMODAFLINIL (NUVIGIL) [Concomitant]
  3. RITUXAMAB (RITUXAN) [Concomitant]
  4. TECFIDERA [Concomitant]
     Active Substance: DIMETHYL FUMARATE
  5. CYANOCOBALAMIN (VITAMIN B-12) [Concomitant]
  6. GILENYA [Concomitant]
     Active Substance: FINGOLIMOD HYDROCHLORIDE
  7. AMPYRA [Suspect]
     Active Substance: DALFAMPRIDINE
     Indication: MULTIPLE SCLEROSIS
     Route: 048
     Dates: start: 201005
  8. LIORESAL [Concomitant]
     Active Substance: BACLOFEN
  9. TRAMADOL (ULTRAM) [Concomitant]
  10. ESTRADIOL (ESTRACE) [Concomitant]
  11. CPDR SR [Concomitant]
  12. VAGL C [Concomitant]

REACTIONS (1)
  - Laboratory test abnormal [None]

NARRATIVE: CASE EVENT DATE: 20141118
